FAERS Safety Report 19554515 (Version 2)
Quarter: 2021Q4

REPORT INFORMATION
  Report Type: Spontaneous
  Country: CA (occurrence: CA)
  Receive Date: 20210715
  Receipt Date: 20211222
  Transmission Date: 20220303
  Serious: Yes (Hospitalization, Other)
  Sender: FDA-Public Use
  Company Number: None

PATIENT
  Age: 34 Year
  Sex: Female
  Weight: 68 kg

DRUGS (5)
  1. QUETIAPINE FUMARATE [Suspect]
     Active Substance: QUETIAPINE FUMARATE
     Indication: Mental disorder
     Dosage: 1 EVERY 1 DAYS
     Route: 048
  2. ATIVAN [Suspect]
     Active Substance: LORAZEPAM
     Indication: Mental disorder
     Route: 065
  3. RISPERDAL CONSTA [Suspect]
     Active Substance: RISPERIDONE
     Indication: Mental disorder
     Route: 030
  4. RISPERIDONE [Suspect]
     Active Substance: RISPERIDONE
     Indication: Mental disorder
  5. ZYPREXA [Suspect]
     Active Substance: OLANZAPINE
     Indication: Mental disorder
     Dosage: 1 EVERY 1 DAYS
     Route: 065

REACTIONS (4)
  - Amenorrhoea [Unknown]
  - Blood cholesterol increased [Unknown]
  - Blood prolactin increased [Unknown]
  - Pituitary tumour benign [Unknown]
